FAERS Safety Report 14596621 (Version 2)
Quarter: 2018Q1

REPORT INFORMATION
  Report Type: Report from Study
  Country: US (occurrence: US)
  Receive Date: 20180304
  Receipt Date: 20180305
  Transmission Date: 20180509
  Serious: Yes (Hospitalization)
  Sender: FDA-Public Use
  Company Number: US-TEVA-2018-US-859723

PATIENT
  Age: 76 Year
  Sex: Female

DRUGS (1)
  1. AUSTEDO [Suspect]
     Active Substance: DEUTETRABENAZINE
     Indication: TARDIVE DYSKINESIA
     Dosage: 6 MILLIGRAM DAILY; ONE 6MG TABLET DAILY
     Route: 065
     Dates: start: 20180102

REACTIONS (13)
  - Fall [Unknown]
  - Gait inability [Unknown]
  - Balance disorder [Recovered/Resolved]
  - Cognitive disorder [Unknown]
  - Loss of consciousness [Unknown]
  - Speech disorder [Recovered/Resolved]
  - Adverse event [Unknown]
  - Gait disturbance [Unknown]
  - Tremor [Unknown]
  - Asthenia [Unknown]
  - Feeling abnormal [Unknown]
  - Chest pain [Unknown]
  - Gait disturbance [Recovered/Resolved]

NARRATIVE: CASE EVENT DATE: 201802
